FAERS Safety Report 7086286-6 (Version None)
Quarter: 2010Q4

REPORT INFORMATION
  Report Type: 
  Country: None (occurrence: None)
  Receive Date: 20101105
  Receipt Date: 20101102
  Transmission Date: 20110411
  Serious: Yes (Hospitalization, Other)
  Sender: FDA-Public Use
  Company Number: DE-MERCK-1011DEU00010

PATIENT
  Age: 74 Year
  Sex: Male
  Weight: 95 kg

DRUGS (4)
  1. JANUMET [Suspect]
     Indication: TYPE 2 DIABETES MELLITUS
     Route: 048
     Dates: start: 20100107, end: 20100831
  2. JANUMET [Suspect]
     Route: 048
     Dates: start: 20100901, end: 20100901
  3. JANUMET [Suspect]
     Route: 048
     Dates: start: 20100902, end: 20100902
  4. JANUMET [Suspect]
     Route: 048
     Dates: start: 20100903, end: 20100903

REACTIONS (4)
  - HEPATITIS ACUTE [None]
  - INCORRECT DOSE ADMINISTERED [None]
  - UNDERDOSE [None]
  - WRONG TECHNIQUE IN DRUG USAGE PROCESS [None]
